FAERS Safety Report 5760921-4 (Version None)
Quarter: 2008Q2

REPORT INFORMATION
  Report Type: 
  Country: None (occurrence: None)
  Receive Date: 20080606
  Receipt Date: 20080528
  Transmission Date: 20081010
  Serious: Yes (Life-Threatening, Hospitalization)
  Sender: FDA-Public Use
  Company Number: AT-ROCHE-567568

PATIENT
  Sex: Female

DRUGS (6)
  1. BONIVA [Suspect]
     Indication: OSTEOPOROSIS
     Dosage: STRENGTH: 3MG/3ML
     Route: 042
     Dates: start: 20080526
  2. SERTRALIN [Concomitant]
     Indication: DEPRESSION
     Route: 048
     Dates: start: 20080301
  3. SYMBICORT [Concomitant]
     Route: 055
     Dates: start: 20070101
  4. SYMBICORT [Concomitant]
     Route: 055
     Dates: start: 20070101
  5. DAFLON [Concomitant]
     Route: 048
     Dates: start: 20070101
  6. DAFLON [Concomitant]
     Route: 048
     Dates: start: 20070101

REACTIONS (1)
  - ANAPHYLACTIC REACTION [None]
